FAERS Safety Report 18480041 (Version 1)
Quarter: 2020Q4

REPORT INFORMATION
  Report Type: Spontaneous
  Country: US (occurrence: US)
  Receive Date: 20201108
  Receipt Date: 20201108
  Transmission Date: 20210114
  Serious: Yes (Hospitalization)
  Sender: FDA-Public Use
  Company Number: None

PATIENT
  Age: 73 Year
  Sex: Male
  Weight: 47.7 kg

DRUGS (7)
  1. CEFEPIME [Suspect]
     Active Substance: CEFEPIME HYDROCHLORIDE
     Indication: FEBRILE NEUTROPENIA
     Route: 042
     Dates: start: 20201013, end: 20201014
  2. INSULIN ASPART U-100 [Concomitant]
  3. ENTECAVIR 0.5MG [Concomitant]
     Active Substance: ENTECAVIR
  4. LIDOCAINE PATCH [Concomitant]
     Active Substance: LIDOCAINE
  5. FAMOTIDINE 20MG [Concomitant]
     Active Substance: FAMOTIDINE
  6. POSACONAZOLE DR 100MG [Concomitant]
  7. ACYCLOVIR 400MG [Concomitant]
     Active Substance: ACYCLOVIR

REACTIONS (5)
  - Encephalopathy [None]
  - Aphasia [None]
  - Confusional state [None]
  - Asthenia [None]
  - Toxicity to various agents [None]

NARRATIVE: CASE EVENT DATE: 20201014
